FAERS Safety Report 13662320 (Version 1)
Quarter: 2017Q2

REPORT INFORMATION
  Report Type: Report from Study
  Country: US (occurrence: US)
  Receive Date: 20170617
  Receipt Date: 20170617
  Transmission Date: 20170830
  Serious: Yes (Death, Hospitalization)
  Sender: FDA-Public Use
  Company Number: US-TORRENT-00002923

PATIENT
  Age: 17 Year
  Sex: Male

DRUGS (4)
  1. TRAZODONE HYDROCHLORIDE. [Suspect]
     Active Substance: TRAZODONE HYDROCHLORIDE
  2. LYSERGIC ACID DIETHYLAMIDE [Suspect]
     Active Substance: LYSERGIDE
  3. FLUOXETINE [Suspect]
     Active Substance: FLUOXETINE HYDROCHLORIDE
  4. DOXYLAMINE SUCCINATE. [Suspect]
     Active Substance: DOXYLAMINE SUCCINATE

REACTIONS (3)
  - Cardio-respiratory arrest [Fatal]
  - Toxicity to various agents [Fatal]
  - Completed suicide [Fatal]
